FAERS Safety Report 17178437 (Version 1)
Quarter: 2019Q4

REPORT INFORMATION
  Report Type: Spontaneous
  Country: IT (occurrence: IT)
  Receive Date: 20191219
  Receipt Date: 20191219
  Transmission Date: 20200122
  Serious: Yes (Hospitalization)
  Sender: FDA-Public Use
  Company Number: IT-ASTRAZENECA-2019SF79653

PATIENT
  Age: 74 Year
  Sex: Male

DRUGS (7)
  1. TORVAST [Concomitant]
     Active Substance: ATORVASTATIN
     Dosage: 40.0MG UNKNOWN
     Route: 048
  2. EZETROL [Concomitant]
     Active Substance: EZETIMIBE
     Dosage: 10.0MG UNKNOWN
     Route: 048
  3. METOPROLOL. [Concomitant]
     Active Substance: METOPROLOL
     Route: 048
  4. CARDIOASPIRIN [Concomitant]
     Active Substance: ASPIRIN
     Dosage: 100.0MG UNKNOWN
     Route: 048
  5. TICAGRELOR. [Suspect]
     Active Substance: TICAGRELOR
     Indication: ISCHAEMIC HEART DISEASE PROPHYLAXIS
     Route: 048
     Dates: start: 20190816, end: 20191121
  6. XIGDUO XR [Concomitant]
     Active Substance: DAPAGLIFLOZIN PROPANEDIOL\METFORMIN HYDROCHLORIDE
     Dosage: 5.0MG UNKNOWN
     Route: 048
  7. LURA [Concomitant]
     Dosage: 0.4MG UNKNOWN
     Route: 048

REACTIONS (2)
  - Asthenia [Recovered/Resolved]
  - Vertigo [Recovered/Resolved]

NARRATIVE: CASE EVENT DATE: 20190830
